FAERS Safety Report 7898300-6 (Version None)
Quarter: 2011Q4

REPORT INFORMATION
  Report Type: 
  Country: None (occurrence: None)
  Receive Date: 20111107
  Receipt Date: 20111026
  Transmission Date: 20120403
  Serious: Yes (Hospitalization)
  Sender: FDA-Public Use
  Company Number: JP-CTI_01414_2011

PATIENT
  Age: 73 Year
  Sex: Male

DRUGS (2)
  1. MEIACT MS (CEFDITOREN PIVOXIL) [Suspect]
     Indication: OROPHARYNGEAL PAIN
     Dosage: DAILY DOSE 300 MG
     Route: 048
     Dates: start: 20111015, end: 20111018
  2. ACETAMINOPHEN [Concomitant]
     Indication: PRODUCT USED FOR UNKNOWN INDICATION
     Dates: start: 20110515, end: 20110518

REACTIONS (3)
  - LARYNGEAL STENOSIS [None]
  - FACE OEDEMA [None]
  - PHARYNGEAL OEDEMA [None]
